FAERS Safety Report 20868897 (Version 2)
Quarter: 2022Q2

REPORT INFORMATION
  Report Type: Report from Study
  Country: DK (occurrence: DK)
  Receive Date: 20220524
  Receipt Date: 20220602
  Transmission Date: 20220721
  Serious: Yes (Hospitalization)
  Sender: FDA-Public Use
  Company Number: DK-TAKEDA-2022TUS033648

PATIENT
  Sex: Female
  Weight: 96 kg

DRUGS (1)
  1. IXAZOMIB [Suspect]
     Active Substance: IXAZOMIB
     Indication: Plasma cell myeloma
     Dosage: 3 MILLIGRAM
     Route: 048
     Dates: start: 20210330

REACTIONS (2)
  - Parainfluenzae virus infection [Recovered/Resolved]
  - Superinfection bacterial [Recovered/Resolved]

NARRATIVE: CASE EVENT DATE: 20220519
